FAERS Safety Report 4642930-1 (Version None)
Quarter: 2005Q2

REPORT INFORMATION
  Report Type: 
  Country: None (occurrence: None)
  Receive Date: 20050421
  Receipt Date: 20050217
  Transmission Date: 20051028
  Serious: Yes (Hospitalization)
  Sender: FDA-Public Use
  Company Number: 2005017707

PATIENT
  Age: 45 Year
  Sex: Female

DRUGS (18)
  1. CARDENALIN (DOXAZOSIN) [Suspect]
     Indication: ILL-DEFINED DISORDER
     Dosage: 4 MG , ORAL
     Route: 048
     Dates: start: 20041223
  2. AMOXICILLIN [Suspect]
     Indication: NASOPHARYNGITIS
     Dosage: COMMON COLD
     Dates: start: 20050111
  3. CARBOCISTEINE (CARBOCISTEINE) [Suspect]
     Indication: NASOPHARYNGITIS
     Dosage: 3 TABLETS, ORAL
     Route: 048
     Dates: start: 20050111
  4. ANTIBIOTICS (ANTIBIOTICS) [Suspect]
     Indication: NASOPHARYNGITIS
     Dosage: ORAL
     Route: 048
     Dates: start: 20050111
  5. LEVOMEPROMAZINE MALEATE (LEVOMEPROMAZINE MALEATE) [Concomitant]
  6. LORMETAZEPAM (LORMETAZEPAM) [Concomitant]
  7. THIORIDAZINE HCL [Concomitant]
  8. TRIHEXYPHENIDYL HCL [Concomitant]
  9. ZOTEPINE (ZOTEPINE) [Concomitant]
  10. PROMETHAZINE HYDROCHLORIDE TAB [Concomitant]
  11. MAGNESIUM OXIDE (MAGNESIUM OXIDE) [Concomitant]
  12. SENNA LEAF (SENNA LEAF) [Concomitant]
  13. REBAMIPIDE (REBAMIPIDE) [Concomitant]
  14. FURSULTIAMINE (FURSULTIAMINE) [Concomitant]
  15. ZALTOPROFEN (ZALTOPROFEN) [Concomitant]
  16. ALACEPRIL (ALACEPRIL) [Concomitant]
  17. NITRENDIPINE (NITRENDIPINE) [Concomitant]
  18. ANALGESICS (ANALGESICS) [Concomitant]

REACTIONS (4)
  - DIALYSIS [None]
  - NASOPHARYNGITIS [None]
  - RENAL FAILURE [None]
  - RHABDOMYOLYSIS [None]
